FAERS Safety Report 14270882 (Version 1)
Quarter: 2017Q4

REPORT INFORMATION
  Report Type: Spontaneous
  Country: ES (occurrence: ES)
  Receive Date: 20171211
  Receipt Date: 20171211
  Transmission Date: 20180321
  Serious: Yes (Other)
  Sender: FDA-Public Use
  Company Number: ES-OTSUKA-16330664

PATIENT
  Age: 77 Year
  Sex: Male

DRUGS (1)
  1. ABILIFY [Suspect]
     Active Substance: ARIPIPRAZOLE
     Dosage: 5 MG, UNK
     Dates: start: 20111209

REACTIONS (2)
  - Movement disorder [Unknown]
  - Urinary incontinence [Unknown]

NARRATIVE: CASE EVENT DATE: 20111209
